FAERS Safety Report 4797105-2 (Version None)
Quarter: 2005Q3

REPORT INFORMATION
  Report Type: 
  Country: None (occurrence: None)
  Receive Date: 20050916
  Receipt Date: 20050310
  Transmission Date: 20060218
  Serious: Yes (Other)
  Sender: FDA-Public Use
  Company Number: US-JNJFOC-20050303428

PATIENT
  Age: 7 Year
  Sex: Male

DRUGS (4)
  1. TOPAMAX [Suspect]
     Indication: CONVULSION
     Dosage: 25 + 50 + 100  MG, 3 IN 1 DAY ORAL
     Route: 048
     Dates: start: 20050303, end: 20050305
  2. TOPAMAX [Suspect]
     Indication: CONVULSION
     Dosage: 25 + 50 + 100  MG, 3 IN 1 DAY ORAL
     Route: 048
     Dates: start: 20050305, end: 20050310
  3. TOPAMAX [Suspect]
     Indication: CONVULSION
     Dosage: 25 + 50 + 100  MG, 3 IN 1 DAY ORAL
     Route: 048
     Dates: start: 20050310
  4. KEPPRA [Concomitant]

REACTIONS (5)
  - CONVULSION [None]
  - EYE MOVEMENT DISORDER [None]
  - EYE PAIN [None]
  - HALO VISION [None]
  - RESPIRATORY RATE INCREASED [None]
